FAERS Safety Report 6440448-7 (Version None)
Quarter: 2009Q4

REPORT INFORMATION
  Report Type: 
  Country: None (occurrence: None)
  Receive Date: 20091113
  Receipt Date: 20091110
  Transmission Date: 20100525
  Serious: No
  Sender: FDA-Public Use
  Company Number: US-ROXANE LABORATORIES, INC.-2009-RO-01157RO

PATIENT
  Sex: Female

DRUGS (1)
  1. CODEINE [Suspect]

REACTIONS (2)
  - NAUSEA [None]
  - VOMITING [None]
